FAERS Safety Report 8551046 (Version 5)
Quarter: 2012Q4

REPORT INFORMATION
  Report Type: Spontaneous
  Country: US (occurrence: None)
  Receive Date: 20120501
  Receipt Date: 20120821
  Transmission Date: 20130627
  Serious: Yes (Other)
  Sender: FDA-Public Use
  Company Number: KAD201204-000250

PATIENT
  Age: 56 Year
  Sex: Male
  Weight: 107 kg

DRUGS (4)
  1. RIBAVIRIN [Suspect]
     Indication: HEPATITIS C
     Dosage: 600 MG, TWO TIMES A DAY,TWO TABLETS TWICE A DAY,  ORAL
     Route: 048
     Dates: start: 20111208
  2. PEGINTRON [Suspect]
     Indication: HEPATITIS C
     Dosage: 150 MCG ONCE A WEEK, AS DIRECTED, SUBCUTANEOUS
     Route: 058
     Dates: start: 20111208
  3. VICTRELIS [Suspect]
     Indication: HEPATITIS C
     Dosage: 800 MG, THREE TIMES A DAY
     Dates: start: 20120107
  4. CHLORDIAZEPOXIDE HYDROCHLORIDE [Concomitant]

REACTIONS (4)
  - Erectile dysfunction [None]
  - Injection site rash [None]
  - Injection site pruritus [None]
  - Eczema [None]
